FAERS Safety Report 6627730-5 (Version None)
Quarter: 2010Q1

REPORT INFORMATION
  Report Type: 
  Country: None (occurrence: None)
  Receive Date: 20100311
  Receipt Date: 20100301
  Transmission Date: 20100710
  Serious: Yes (Hospitalization, Other)
  Sender: FDA-Public Use
  Company Number: PHHY2009CN54758

PATIENT
  Age: 73 Year
  Sex: Female

DRUGS (4)
  1. LESCOL [Suspect]
     Indication: HYPERLIPIDAEMIA
     Dosage: 40 MG
     Route: 048
     Dates: start: 20091115
  2. LESCOL [Suspect]
     Dosage: 40 MG
     Route: 048
     Dates: start: 20091201
  3. NIFEDIPINE [Concomitant]
     Dosage: 10 MG, BID
     Route: 048
  4. ASPIRIN [Concomitant]
     Dosage: 80 MG, QN
     Route: 048

REACTIONS (15)
  - ABDOMINAL DISTENSION [None]
  - ABDOMINAL PAIN UPPER [None]
  - APPENDICITIS [None]
  - BACK PAIN [None]
  - BLOOD CREATINE PHOSPHOKINASE INCREASED [None]
  - BONE PAIN [None]
  - FATIGUE [None]
  - FEELING COLD [None]
  - FOOD AVERSION [None]
  - HEPATITIS [None]
  - LIVER DISORDER [None]
  - MYALGIA [None]
  - NEUTROPHIL COUNT INCREASED [None]
  - PYREXIA [None]
  - WHITE BLOOD CELL COUNT INCREASED [None]
